FAERS Safety Report 16561522 (Version 8)
Quarter: 2020Q4

REPORT INFORMATION
  Report Type: Report from Study
  Country: US (occurrence: US)
  Receive Date: 20190711
  Receipt Date: 20201204
  Transmission Date: 20210113
  Serious: Yes (Death, Hospitalization)
  Sender: FDA-Public Use
  Company Number: US-PFIZER INC-2019281696

PATIENT
  Age: 68 Year
  Sex: Female
  Weight: 74.9 kg

DRUGS (7)
  1. CHLORTHALIDONE. [Concomitant]
     Active Substance: CHLORTHALIDONE
     Indication: HYPERTENSION
     Dosage: 25 MG, 1X/DAY
     Route: 048
     Dates: start: 2011
  2. XELJANZ [Suspect]
     Active Substance: TOFACITINIB CITRATE
     Indication: RHEUMATOID ARTHRITIS
     Dosage: 5 MG, 2X/DAY
     Route: 048
     Dates: start: 20150709, end: 20190411
  3. ALEVE [Concomitant]
     Active Substance: NAPROXEN SODIUM
     Indication: RHEUMATOID ARTHRITIS
     Dosage: 202 MG, AS NEEDED
     Route: 048
     Dates: start: 201301
  4. TYLENOL ARTHRITIS PAIN [Concomitant]
     Active Substance: ACETAMINOPHEN
     Indication: RHEUMATOID ARTHRITIS
     Dosage: 650 MG, AS NEEDED
     Route: 048
     Dates: start: 201301
  5. KLOR-CON [Concomitant]
     Active Substance: POTASSIUM CHLORIDE
     Indication: SUPPLEMENTATION THERAPY
     Dosage: 40 MEQ, 1X/DAY
     Route: 048
     Dates: start: 201303
  6. METHOTREXATE. [Concomitant]
     Active Substance: METHOTREXATE
     Indication: RHEUMATOID ARTHRITIS
     Dosage: 20 MG, WEEKLY
     Route: 048
     Dates: start: 2009, end: 20190411
  7. FOLIC ACID. [Concomitant]
     Active Substance: FOLIC ACID
     Indication: SUPPLEMENTATION THERAPY
     Dosage: 1 MG, 1X/DAY
     Route: 048
     Dates: start: 2009

REACTIONS (7)
  - Gastrointestinal lymphoma [Not Recovered/Not Resolved]
  - Malignant pleural effusion [Fatal]
  - Diffuse large B-cell lymphoma [Not Recovered/Not Resolved]
  - Malignant pleural effusion [Not Recovered/Not Resolved]
  - Lymphoma [Not Recovered/Not Resolved]
  - Diffuse large B-cell lymphoma [Fatal]
  - Diffuse large B-cell lymphoma [Fatal]

NARRATIVE: CASE EVENT DATE: 20190417
